FAERS Safety Report 13668812 (Version 2)
Quarter: 2017Q3

REPORT INFORMATION
  Report Type: Report from Study
  Country: US (occurrence: BR)
  Receive Date: 20170620
  Receipt Date: 20170921
  Transmission Date: 20171127
  Serious: Yes (Death)
  Sender: FDA-Public Use
  Company Number: US-SUNOVION-2017SUN002552

PATIENT
  Sex: Female
  Weight: 88 kg

DRUGS (3)
  1. INDACATEROL [Suspect]
     Active Substance: INDACATEROL
     Indication: LUNG DISORDER
     Dosage: UNK UNK, BID
     Route: 055
     Dates: start: 2013
  2. INDACATEROL [Suspect]
     Active Substance: INDACATEROL
     Indication: OXYGEN CONSUMPTION DECREASED
  3. INDACATEROL [Suspect]
     Active Substance: INDACATEROL
     Indication: DYSPNOEA

REACTIONS (2)
  - Gastric cancer [Fatal]
  - Product use in unapproved indication [Unknown]
